FAERS Safety Report 17233865 (Version 3)
Quarter: 2020Q1

REPORT INFORMATION
  Report Type: Report from Study
  Country: None (occurrence: NL)
  Receive Date: 20200106
  Receipt Date: 20200128
  Transmission Date: 20200409
  Serious: Yes (Death, Life-Threatening, Hospitalization)
  Sender: FDA-Public Use
  Company Number: NL-ABBVIE-20K-114-3219188-00

PATIENT
  Sex: Male

DRUGS (1)
  1. DUODOPA [Suspect]
     Active Substance: CARBIDOPA\LEVODOPA
     Indication: PARKINSON^S DISEASE
     Dosage: 20 MG/ML 5 MG/ML
     Route: 050
     Dates: start: 20151104

REACTIONS (5)
  - General physical health deterioration [Fatal]
  - On and off phenomenon [Not Recovered/Not Resolved]
  - Mental disorder [Fatal]
  - Terminal state [Fatal]
  - Psychotic disorder [Not Recovered/Not Resolved]
